FAERS Safety Report 18146879 (Version 1)
Quarter: 2020Q3

REPORT INFORMATION
  Report Type: Report from Study
  Country: EG (occurrence: EG)
  Receive Date: 20200813
  Receipt Date: 20200813
  Transmission Date: 20201103
  Serious: Yes (Hospitalization, Disabling, Other)
  Sender: FDA-Public Use
  Company Number: NVSC2020EG221379

PATIENT
  Age: 38 Year
  Sex: Female

DRUGS (1)
  1. TASIGNA [Suspect]
     Active Substance: NILOTINIB
     Indication: CHRONIC MYELOID LEUKAEMIA
     Dosage: 4 DF, QD(4 CAPS/DAY)
     Route: 065
     Dates: start: 201901, end: 201908

REACTIONS (6)
  - Loss of consciousness [Recovered/Resolved]
  - Polymerase chain reaction [Unknown]
  - Gait disturbance [Recovered/Resolved]
  - Accident [Recovered/Resolved]
  - Limb crushing injury [Recovered/Resolved]
  - Coma [Recovered/Resolved]

NARRATIVE: CASE EVENT DATE: 201908
